FAERS Safety Report 15480159 (Version 1)
Quarter: 2018Q4

REPORT INFORMATION
  Report Type: Spontaneous
  Country: DE (occurrence: DE)
  Receive Date: 20181009
  Receipt Date: 20181009
  Transmission Date: 20190205
  Serious: Yes (Other)
  Sender: FDA-Public Use
  Company Number: DE-BAUSCH-BL-2018-027026

PATIENT
  Age: 70 Year
  Sex: Male

DRUGS (2)
  1. ACYCLOVIR. [Suspect]
     Active Substance: ACYCLOVIR
     Indication: HERPES ZOSTER
     Route: 065
     Dates: start: 2016, end: 2016
  2. BRIVUDINE [Suspect]
     Active Substance: BRIVUDINE
     Indication: HERPES ZOSTER
     Route: 065
     Dates: start: 2016, end: 2016

REACTIONS (1)
  - Drug ineffective [Recovered/Resolved]

NARRATIVE: CASE EVENT DATE: 2016
